FAERS Safety Report 9055480 (Version 2)
Quarter: 2013Q1

REPORT INFORMATION
  Report Type: Spontaneous
  Country: IL (occurrence: IL)
  Receive Date: 20130206
  Receipt Date: 20130208
  Transmission Date: 20140127
  Serious: Yes (Hospitalization)
  Sender: FDA-Public Use
  Company Number: IL-ABBOTT-13P-082-1043703-00

PATIENT
  Sex: Female

DRUGS (4)
  1. SYNAGIS [Suspect]
     Indication: ANTIVIRAL PROPHYLAXIS
     Dates: start: 20121107, end: 20121107
  2. SYNAGIS [Suspect]
     Dates: start: 20121205, end: 20121205
  3. SYNAGIS [Suspect]
     Dates: start: 20130102, end: 20130102
  4. SYNAGIS [Suspect]
     Dates: start: 20130130

REACTIONS (3)
  - Cough [Recovered/Resolved]
  - Dyspnoea [Recovered/Resolved]
  - Respiratory syncytial virus test positive [Recovered/Resolved]
